FAERS Safety Report 15778740 (Version 1)
Quarter: 2019Q1

REPORT INFORMATION
  Report Type: Spontaneous
  Country: US (occurrence: US)
  Receive Date: 20190101
  Receipt Date: 20190101
  Transmission Date: 20190417
  Serious: Yes (Hospitalization, Other)
  Sender: FDA-Public Use
  Company Number: US-AUROBINDO-AUR-APL-2018-063943

PATIENT
  Age: 79 Year
  Sex: Male

DRUGS (6)
  1. NAFICILLIN [Interacting]
     Active Substance: NAFCILLIN\NAFCILLIN SODIUM
     Dosage: UNK
     Route: 065
  2. NAFICILLIN [Suspect]
     Active Substance: NAFCILLIN\NAFCILLIN SODIUM
     Indication: ENDOCARDITIS
     Route: 065
  3. WARFARIN [Interacting]
     Active Substance: WARFARIN
     Dosage: 70 MILLIGRAM, EVERY WEEK
     Route: 065
  4. WARFARIN [Interacting]
     Active Substance: WARFARIN
     Indication: THROMBOSIS PROPHYLAXIS
     Dosage: 35 MILLIGRAM, EVERY WEEK
     Route: 065
  5. WARFARIN [Interacting]
     Active Substance: WARFARIN
     Dosage: 62.5 MILLIGRAM, EVERY WEEK
     Route: 065
  6. WARFARIN [Interacting]
     Active Substance: WARFARIN
     Dosage: 100 MILLIGRAM, EVERY WEEK
     Route: 065

REACTIONS (2)
  - Drug interaction [Unknown]
  - Anticoagulation drug level below therapeutic [Unknown]
